FAERS Safety Report 11827682 (Version 1)
Quarter: 2015Q4

REPORT INFORMATION
  Report Type: Spontaneous
  Country: US (occurrence: US)
  Receive Date: 20151211
  Receipt Date: 20151211
  Transmission Date: 20160305
  Serious: Yes (Other)
  Sender: FDA-Public Use
  Company Number: US-BAUSCH-BL-2015-028898

PATIENT
  Sex: Male

DRUGS (2)
  1. PROVENGE [Suspect]
     Active Substance: SIPULEUCEL-T
     Indication: PROSTATE CANCER
     Dosage: SINGLE
     Route: 042
     Dates: start: 20151029, end: 20151029
  2. PROVENGE [Suspect]
     Active Substance: SIPULEUCEL-T
     Dosage: SINGLE
     Route: 042
     Dates: start: 20151112, end: 20151112

REACTIONS (2)
  - Platelet count decreased [Unknown]
  - Haemoglobin decreased [Unknown]
